FAERS Safety Report 14165014 (Version 2)
Quarter: 2018Q1

REPORT INFORMATION
  Report Type: Spontaneous
  Country: US (occurrence: US)
  Receive Date: 20171107
  Receipt Date: 20180309
  Transmission Date: 20180508
  Serious: No
  Sender: FDA-Public Use
  Company Number: US-ASTRAZENECA-2017SF11414

PATIENT
  Age: 62 Year
  Sex: Female
  Weight: 46.7 kg

DRUGS (4)
  1. SYMBICORT [Suspect]
     Active Substance: BUDESONIDE\FORMOTEROL FUMARATE DIHYDRATE
     Indication: EMPHYSEMA
     Dosage: 160/4.5 UG, 2 PUFFS, TWO TIMES A DAY
     Route: 055
  2. BABY ASPIRIN [Concomitant]
     Active Substance: ASPIRIN
     Indication: CARDIAC DISORDER
     Dosage: DAILY
  3. SYMBICORT [Suspect]
     Active Substance: BUDESONIDE\FORMOTEROL FUMARATE DIHYDRATE
     Indication: CHRONIC OBSTRUCTIVE PULMONARY DISEASE
     Dosage: 160/4.5 UG, 2 PUFFS, TWO TIMES A DAY
     Route: 055
  4. SYMBICORT [Suspect]
     Active Substance: BUDESONIDE\FORMOTEROL FUMARATE DIHYDRATE
     Indication: ASTHMA
     Dosage: 160/4.5 UG, 2 PUFFS, TWO TIMES A DAY
     Route: 055

REACTIONS (6)
  - Drug dose omission [Not Recovered/Not Resolved]
  - Cataract [Not Recovered/Not Resolved]
  - Underdose [Unknown]
  - Device malfunction [Unknown]
  - Intentional device misuse [Unknown]
  - Visual acuity reduced [Unknown]

NARRATIVE: CASE EVENT DATE: 2015
